FAERS Safety Report 8377860-5 (Version None)
Quarter: 2012Q2

REPORT INFORMATION
  Report Type: 
  Country: None (occurrence: None)
  Receive Date: 20120522
  Receipt Date: 20120515
  Transmission Date: 20120825
  Serious: Yes (Hospitalization)
  Sender: FDA-Public Use
  Company Number: US-MERCK-1112USA02421

PATIENT
  Age: 66 Year
  Sex: Female
  Weight: 57 kg

DRUGS (3)
  1. FOSAMAX PLUS D [Suspect]
     Indication: OSTEOPOROSIS
     Route: 048
     Dates: start: 20090101, end: 20110501
  2. FOSAMAX [Suspect]
     Indication: OSTEOPOROSIS
     Route: 048
     Dates: start: 20020101, end: 20080101
  3. CALCIUM (UNSPECIFIED) [Concomitant]
     Route: 065

REACTIONS (26)
  - BONE LESION [None]
  - CARDIAC MURMUR [None]
  - HYPERTENSION [None]
  - LEFT ATRIAL DILATATION [None]
  - MITRAL VALVE PROLAPSE [None]
  - ECZEMA [None]
  - CALCIUM DEFICIENCY [None]
  - VARICOSE VEIN [None]
  - FEMUR FRACTURE [None]
  - OEDEMA PERIPHERAL [None]
  - PHLEBOLITH [None]
  - FLATULENCE [None]
  - CONTUSION [None]
  - INTERVERTEBRAL DISC DEGENERATION [None]
  - VITAMIN A DEFICIENCY [None]
  - TONSILLAR DISORDER [None]
  - ADENOIDAL DISORDER [None]
  - SPONDYLOLISTHESIS [None]
  - OSTEOPENIA [None]
  - INCONTINENCE [None]
  - OVERDOSE [None]
  - ILEUS [None]
  - SCOLIOSIS [None]
  - ELECTROCARDIOGRAM ST-T CHANGE [None]
  - CATARACT [None]
  - HYPOTHYROIDISM [None]
